FAERS Safety Report 4623648-8 (Version None)
Quarter: 2005Q1

REPORT INFORMATION
  Report Type: 
  Country: None (occurrence: None)
  Receive Date: 20050331
  Receipt Date: 20030816
  Transmission Date: 20050727
  Serious: Yes (Hospitalization)
  Sender: FDA-Public Use
  Company Number: DE-ABBOTT-03P-062-0229893-00

PATIENT
  Sex: Female
  Weight: 63 kg

DRUGS (17)
  1. HUMIRA [Suspect]
     Indication: RHEUMATOID ARTHRITIS
     Dosage: 40 MG
     Route: 058
     Dates: start: 20030312, end: 20030924
  2. METHOTREXATE [Concomitant]
     Indication: RHEUMATOID ARTHRITIS
     Route: 048
     Dates: start: 19980501, end: 20020508
  3. METHOTREXATE [Concomitant]
     Route: 030
     Dates: start: 20020509, end: 20030530
  4. METHOTREXATE [Concomitant]
     Route: 048
     Dates: start: 20020531, end: 20030522
  5. METHOTREXATE [Concomitant]
     Route: 048
     Dates: start: 20030523
  6. DMARD [Concomitant]
     Indication: RHEUMATOID ARTHRITIS
     Route: 042
     Dates: start: 20010301, end: 20030113
  7. PREDNISOLONE [Concomitant]
     Indication: RHEUMATOID ARTHRITIS
     Route: 048
     Dates: start: 20021201, end: 20030216
  8. PREDNISOLONE [Concomitant]
     Route: 048
     Dates: start: 20030217, end: 20030220
  9. PREDNISOLONE [Concomitant]
     Route: 048
     Dates: start: 20030221
  10. FOLIC ACID [Concomitant]
     Indication: VITAMIN SUPPLEMENTATION
     Route: 048
     Dates: start: 19980501
  11. OXYCODONE HCL [Concomitant]
     Indication: ARTHRALGIA
     Route: 048
     Dates: start: 20021201
  12. ROFECOXIB [Concomitant]
     Indication: ARTHRALGIA
     Route: 048
     Dates: start: 20021201, end: 20030401
  13. ESOMEPRAZOLE [Concomitant]
     Indication: GASTRITIS
     Route: 048
     Dates: start: 20030519
  14. HYOSCINE HBR HYT [Concomitant]
     Indication: GASTRITIS
     Route: 030
     Dates: start: 20030522, end: 20030522
  15. HYOSCINE HBR HYT [Concomitant]
     Indication: ABDOMINAL PAIN
  16. TRAMADOL HCL [Concomitant]
     Indication: GASTRITIS
     Route: 030
     Dates: start: 20030522, end: 20030522
  17. TRAMADOL HCL [Concomitant]
     Indication: ABDOMINAL PAIN

REACTIONS (1)
  - BILIARY CIRRHOSIS PRIMARY [None]
